FAERS Safety Report 5369147-X (Version None)
Quarter: 2007Q2

REPORT INFORMATION
  Report Type: 
  Country: None (occurrence: None)
  Receive Date: 20070625
  Receipt Date: 20070123
  Transmission Date: 20071010
  Serious: No
  Sender: FDA-Public Use
  Company Number: US-ASTRAZENECA-2007UW01358

PATIENT

DRUGS (2)
  1. CRESTOR [Suspect]
     Route: 048
  2. NIASPAN [Suspect]

REACTIONS (1)
  - MOOD ALTERED [None]
